FAERS Safety Report 8882170 (Version 2)
Quarter: 2013Q1

REPORT INFORMATION
  Report Type: Spontaneous
  Country: GB (occurrence: GB)
  Receive Date: 20121102
  Receipt Date: 20130114
  Transmission Date: 20140127
  Serious: Yes (Other)
  Sender: FDA-Public Use
  Company Number: GB-BAYER-2012-112619

PATIENT
  Age: 30 Year
  Sex: Female

DRUGS (2)
  1. CANESTEN COMBI 500MG PESSARY + 2% CREAM [Suspect]
     Indication: VULVOVAGINAL CANDIDIASIS
     Dosage: UNK
     Dates: start: 20121022
  2. SAFE-T-COIL [Concomitant]

REACTIONS (2)
  - Vaginal haemorrhage [None]
  - Pain [None]
